FAERS Safety Report 14959501 (Version 1)
Quarter: 2018Q2

REPORT INFORMATION
  Report Type: Spontaneous
  Country: US (occurrence: US)
  Receive Date: 20180531
  Receipt Date: 20180531
  Transmission Date: 20180711
  Serious: Yes (Life-Threatening, Other)
  Sender: FDA-Public Use
  Company Number: US-FRESENIUS KABI-FK201806296

PATIENT
  Age: 61 Year
  Sex: Female

DRUGS (1)
  1. MORPHINE (MANUFACTURER UNKNOWN) [Suspect]
     Active Substance: MORPHINE
     Indication: POSTOPERATIVE ANALGESIA
     Route: 014

REACTIONS (3)
  - Drug dispensing error [Recovered/Resolved]
  - Accidental overdose [Recovered/Resolved]
  - Unresponsive to stimuli [Recovered/Resolved]
